FAERS Safety Report 14677201 (Version 1)
Quarter: 2018Q1

REPORT INFORMATION
  Report Type: Spontaneous
  Country: US (occurrence: US)
  Receive Date: 20180323
  Receipt Date: 20180323
  Transmission Date: 20180509
  Serious: Yes (Disabling)
  Sender: FDA-Public Use
  Company Number: None

PATIENT
  Age: 87 Year
  Sex: Female
  Weight: 56.25 kg

DRUGS (8)
  1. TOCOPHEROL [Concomitant]
     Active Substance: TOCOPHEROL
  2. LORAZEPAM. [Suspect]
     Active Substance: LORAZEPAM
     Indication: INSOMNIA
     Dosage: ?          QUANTITY:1.5 TABLET(S);?
     Route: 048
  3. LOW DOSE ASPIRIN [Concomitant]
     Active Substance: ASPIRIN
  4. TRUEHOPE AMINOPOWER ADVANCED [Concomitant]
  5. 1/NIGHT PRESERVISION [Concomitant]
  6. 2/DAY GAMMA E [Concomitant]
  7. PRAVASTATIN. [Concomitant]
     Active Substance: PRAVASTATIN
  8. TRUEHOPE EMPOWERPLUS ADVANCED [Concomitant]

REACTIONS (11)
  - Speech disorder [None]
  - Frontotemporal dementia [None]
  - Personality disorder [None]
  - Choking sensation [None]
  - Pneumonia aspiration [None]
  - Paranoia [None]
  - Alcoholism [None]
  - Dementia Alzheimer^s type [None]
  - Metabolic disorder [None]
  - Delusion [None]
  - Depression [None]

NARRATIVE: CASE EVENT DATE: 20171029
